FAERS Safety Report 15298774 (Version 1)
Quarter: 2018Q3

REPORT INFORMATION
  Report Type: Spontaneous
  Country: US (occurrence: US)
  Receive Date: 20180808
  Receipt Date: 20180808
  Transmission Date: 20181010
  Serious: No
  Sender: FDA-Public Use
  Company Number: None

PATIENT

DRUGS (1)
  1. BUPIVACAINE SPINAL ? BUPIVACAINE 0.75% IN DEXTROSE 8.25% [Suspect]
     Active Substance: BUPIVACAINE
     Indication: NEUROMUSCULAR BLOCKING THERAPY
     Route: 024
     Dates: start: 20180725, end: 20180808

REACTIONS (2)
  - Product quality issue [None]
  - Treatment failure [None]

NARRATIVE: CASE EVENT DATE: 20180808
